FAERS Safety Report 10488746 (Version 2)
Quarter: 2014Q4

REPORT INFORMATION
  Report Type: Spontaneous
  Country: JP (occurrence: JP)
  Receive Date: 20141002
  Receipt Date: 20141014
  Transmission Date: 20150528
  Serious: Yes (Hospitalization)
  Sender: FDA-Public Use
  Company Number: JP-JNJFOC-20140926211

PATIENT
  Age: 8 Decade
  Sex: Female

DRUGS (3)
  1. METHOTREXATE [Suspect]
     Active Substance: METHOTREXATE
     Indication: SCLERODERMA
     Route: 048
     Dates: start: 20131203
  2. SIMPONI [Suspect]
     Active Substance: GOLIMUMAB
     Indication: SCLERODERMA
     Route: 058
     Dates: start: 20140617
  3. PREDNISOLONE. [Suspect]
     Active Substance: PREDNISOLONE
     Indication: SCLERODERMA
     Route: 048

REACTIONS (2)
  - Product use issue [Unknown]
  - Pyelonephritis [Recovered/Resolved]

NARRATIVE: CASE EVENT DATE: 20140617
